FAERS Safety Report 7324114-1 (Version None)
Quarter: 2011Q1

REPORT INFORMATION
  Report Type: 
  Country: None (occurrence: None)
  Receive Date: 20110217
  Receipt Date: 20110207
  Transmission Date: 20110831
  Serious: Yes (Hospitalization)
  Sender: FDA-Public Use
  Company Number: 2011SP000428

PATIENT
  Age: 44 Year
  Sex: Male
  Weight: 73 kg

DRUGS (5)
  1. LUNESTA [Suspect]
     Indication: INSOMNIA
     Dosage: 2 MG; HS; ORAL, 60 MG; 1X, ORAL
     Route: 048
     Dates: start: 20101001, end: 20101201
  2. LUNESTA [Suspect]
     Indication: INSOMNIA
     Dosage: 2 MG; HS; ORAL, 60 MG; 1X, ORAL
     Route: 048
     Dates: start: 20110101, end: 20110101
  3. AMBIEN CR [Suspect]
     Indication: INSOMNIA
     Dosage: 12.5 MG; HS;
     Dates: start: 20101201
  4. XANAX [Suspect]
     Indication: DEPRESSION
  5. LEXAPRO [Suspect]
     Indication: DEPRESSION

REACTIONS (4)
  - MULTIPLE DRUG OVERDOSE INTENTIONAL [None]
  - DRUG INEFFECTIVE [None]
  - SUICIDE ATTEMPT [None]
  - INSOMNIA [None]
